FAERS Safety Report 23404311 (Version 1)
Quarter: 2024Q1

REPORT INFORMATION
  Report Type: Spontaneous
  Country: US (occurrence: US)
  Receive Date: 20240116
  Receipt Date: 20240116
  Transmission Date: 20240409
  Serious: Yes (Hospitalization)
  Sender: FDA-Public Use
  Company Number: CID000000000043669

PATIENT
  Age: 23 Year

DRUGS (3)
  1. UZEDY [Suspect]
     Active Substance: RISPERIDONE
     Indication: Schizophrenia
     Dosage: FORM STRENGTH: 75/0.21 MG/ML?
     Route: 065
  2. UZEDY [Suspect]
     Active Substance: RISPERIDONE
     Route: 065
     Dates: start: 2023
  3. UZEDY [Suspect]
     Active Substance: RISPERIDONE
     Route: 065
     Dates: start: 20231231

REACTIONS (1)
  - Hospitalisation [Unknown]

NARRATIVE: CASE EVENT DATE: 20231215
